FAERS Safety Report 11954145 (Version 1)
Quarter: 2016Q1

REPORT INFORMATION
  Report Type: Spontaneous
  Country: VE (occurrence: VE)
  Receive Date: 20160126
  Receipt Date: 20160126
  Transmission Date: 20160526
  Serious: Yes (Hospitalization, Other)
  Sender: FDA-Public Use
  Company Number: PHHY2016VE009942

PATIENT
  Sex: Female

DRUGS (6)
  1. AIRON [Concomitant]
     Indication: ASTHMA
     Dosage: 10 MG, QD
     Route: 065
     Dates: start: 2010
  2. MICARDIS [Concomitant]
     Active Substance: TELMISARTAN
     Indication: BLOOD PRESSURE ABNORMAL
     Dosage: 80 MG, QD
     Route: 065
  3. FORADIL [Suspect]
     Active Substance: FORMOTEROL FUMARATE
     Indication: BRONCHOSPASM
     Dosage: 12 UG, QD
     Route: 055
     Dates: start: 2006
  4. CETIRIZINE [Concomitant]
     Active Substance: CETIRIZINE HYDROCHLORIDE
     Indication: HYPERSENSITIVITY
     Dosage: UNK UNK, QD
     Route: 065
  5. MIFLONIDE [Suspect]
     Active Substance: BUDESONIDE
     Indication: BRONCHOSPASM
     Dosage: 200 UG, QD
     Route: 055
     Dates: start: 2006
  6. ZIAC [Concomitant]
     Active Substance: BISOPROLOL FUMARATE\HYDROCHLOROTHIAZIDE
     Indication: BLOOD PRESSURE ABNORMAL
     Dosage: 5.6 MG, QD
     Route: 065

REACTIONS (5)
  - Bronchospasm [Unknown]
  - Bronchitis [Unknown]
  - Expired product administered [Unknown]
  - Product use issue [Unknown]
  - Asthmatic crisis [Unknown]

NARRATIVE: CASE EVENT DATE: 2006
